FAERS Safety Report 5545908-9 (Version None)
Quarter: 2007Q4

REPORT INFORMATION
  Report Type: 
  Country: None (occurrence: None)
  Receive Date: 20071211
  Receipt Date: 20071031
  Transmission Date: 20080405
  Serious: No
  Sender: FDA-Public Use
  Company Number: US-ASTRAZENECA-2007UW25360

PATIENT
  Age: 61 Year
  Sex: Female

DRUGS (3)
  1. SYMBICORT [Suspect]
     Dosage: 160/4.5, 2 IH, BID
     Route: 055
  2. SPIRIVA [Concomitant]
  3. PROVENTIL-HFA [Concomitant]

REACTIONS (1)
  - FEELING JITTERY [None]
